FAERS Safety Report 20059734 (Version 3)
Quarter: 2022Q1

REPORT INFORMATION
  Report Type: Spontaneous
  Country: JP (occurrence: JP)
  Receive Date: 20211111
  Receipt Date: 20220316
  Transmission Date: 20220424
  Serious: Yes (Death, Other)
  Sender: FDA-Public Use
  Company Number: JP-JAZZ-2021-JP-020501

PATIENT
  Age: 44 Year
  Sex: Female
  Weight: 46.7 kg

DRUGS (1)
  1. DEFITELIO [Suspect]
     Active Substance: DEFIBROTIDE SODIUM
     Indication: Venoocclusive liver disease
     Dosage: 25 MILLIGRAM/KILOGRAM, QD
     Route: 042
     Dates: start: 20211014, end: 20211020

REACTIONS (3)
  - Human herpesvirus 6 encephalitis [Fatal]
  - Lung disorder [Fatal]
  - Haemorrhagic diathesis [Unknown]

NARRATIVE: CASE EVENT DATE: 20211001
